FAERS Safety Report 23457905 (Version 1)
Quarter: 2024Q1

REPORT INFORMATION
  Report Type: Spontaneous
  Country: US (occurrence: None)
  Receive Date: 20240130
  Receipt Date: 20240130
  Transmission Date: 20240409
  Serious: Yes (Death)
  Sender: FDA-Public Use
  Company Number: None

PATIENT
  Sex: Female

DRUGS (18)
  1. TERIFLUNOMIDE [Suspect]
     Active Substance: TERIFLUNOMIDE
     Indication: Multiple sclerosis
     Dosage: 14 NG  ORAL??TAKE 1 TABLE (1 MG) BY MOUTH DAILY?
     Route: 048
     Dates: start: 20230518
  2. TERIFLUNOMIDE [Suspect]
     Active Substance: TERIFLUNOMIDE
     Dosage: FREQUENCY : DAILY;?
     Route: 048
  3. AMANTADINE [Concomitant]
  4. BACLOFEN [Concomitant]
  5. CITALOPRAM [Concomitant]
  6. GABAPENTIN [Concomitant]
  7. LEVOTHYROXIN [Concomitant]
  8. LISINOPRIL [Concomitant]
     Active Substance: LISINOPRIL
  9. MAGNESIUM OXIDE [Concomitant]
     Active Substance: MAGNESIUM OXIDE
  10. METFORMIN [Concomitant]
  11. METHENAM [Concomitant]
  12. MORPHINE SULFATE [Concomitant]
     Active Substance: MORPHINE SULFATE
  13. OXYBUTYNIN [Concomitant]
  14. POT CL MICRO [Concomitant]
  15. SIMVASTATIN [Concomitant]
  16. TIZANIDINE [Concomitant]
  17. VITAMIN B-12 [Concomitant]
  18. VITAMIN D [Concomitant]
     Active Substance: VITAMIN D NOS

REACTIONS (1)
  - Death [None]
